FAERS Safety Report 13061317 (Version 1)
Quarter: 2016Q4

REPORT INFORMATION
  Report Type: Spontaneous
  Country: US (occurrence: US)
  Receive Date: 20161226
  Receipt Date: 20161226
  Transmission Date: 20170207
  Serious: No
  Sender: FDA-Public Use
  Company Number: US-ASTRAZENECA-2016SF24435

PATIENT
  Sex: Female

DRUGS (14)
  1. BIEST [Concomitant]
     Active Substance: ESTRADIOL\ESTRIOL
     Route: 062
  2. PROGESTIN [Concomitant]
     Active Substance: PROGESTERONE
  3. HYDROCODONE /NORCO [Concomitant]
     Indication: PAIN
     Dosage: ONE FOUTH TABLET, AS REQUIRED
     Route: 048
  4. TYLENOL [Concomitant]
     Active Substance: ACETAMINOPHEN
     Dosage: 500 MG, EVERY THREE TO FOUR HOURS AS REQUIRED
     Route: 048
  5. LEVOXYL [Suspect]
     Active Substance: LEVOTHYROXINE SODIUM
     Route: 048
  6. LIOTHYRONINE SODIUM. [Concomitant]
     Active Substance: LIOTHYRONINE SODIUM
     Route: 048
  7. TOPROL XL [Suspect]
     Active Substance: METOPROLOL SUCCINATE
     Indication: HEART RATE IRREGULAR
     Route: 048
  8. LYRICA [Suspect]
     Active Substance: PREGABALIN
     Indication: POST HERPETIC NEURALGIA
     Route: 048
  9. AMLODIPINE BESYLATE. [Concomitant]
     Active Substance: AMLODIPINE BESYLATE
     Route: 048
  10. MIRAPEX [Concomitant]
     Active Substance: PRAMIPEXOLE DIHYDROCHLORIDE
     Route: 048
  11. LIDOCAINE. [Concomitant]
     Active Substance: LIDOCAINE
     Dosage: 3 PATCHES TO INTACT SKIN, REMOVE AFTER 12 HOURS ONCE A DAY
     Route: 061
  12. LYRICA [Suspect]
     Active Substance: PREGABALIN
     Indication: HERPES ZOSTER
     Route: 048
  13. NAPROXEN. [Concomitant]
     Active Substance: NAPROXEN
  14. TESTOSTERONE. [Concomitant]
     Active Substance: TESTOSTERONE
     Route: 062

REACTIONS (1)
  - Drug hypersensitivity [Not Recovered/Not Resolved]
